FAERS Safety Report 4906234-1 (Version None)
Quarter: 2006Q1

REPORT INFORMATION
  Report Type: 
  Country: None (occurrence: None)
  Receive Date: 20060207
  Receipt Date: 20060125
  Transmission Date: 20060701
  Serious: Yes (Hospitalization, Other)
  Sender: FDA-Public Use
  Company Number: 2006014531

PATIENT
  Age: 88 Year
  Sex: Female
  Weight: 47 kg

DRUGS (5)
  1. NORVASC [Suspect]
     Indication: ILL-DEFINED DISORDER
  2. DIOVAN [Suspect]
     Indication: ILL-DEFINED DISORDER
  3. BEZAFIBRATE (BEZAFIBRATE) [Concomitant]
  4. CALCIUM LACTATE (CALCIUM LACTATE) [Concomitant]
  5. SIGMART (NICORANDIL) [Concomitant]

REACTIONS (16)
  - ARTERIOSCLEROSIS [None]
  - BLOOD CALCIUM INCREASED [None]
  - BLOOD CHOLESTEROL INCREASED [None]
  - BLOOD PRESSURE SYSTOLIC INCREASED [None]
  - BLOOD URIC ACID INCREASED [None]
  - CEREBRAL ISCHAEMIA [None]
  - COGNITIVE DISORDER [None]
  - CONTUSION [None]
  - DEMENTIA ALZHEIMER'S TYPE [None]
  - DISORIENTATION [None]
  - DIZZINESS [None]
  - FALL [None]
  - MEMORY IMPAIRMENT [None]
  - SUBCLAVIAN ARTERY STENOSIS [None]
  - SUBCLAVIAN STEAL SYNDROME [None]
  - SUBDURAL HAEMATOMA [None]
